FAERS Safety Report 6650301-1 (Version None)
Quarter: 2010Q1

REPORT INFORMATION
  Report Type: 
  Country: None (occurrence: None)
  Receive Date: 20100325
  Receipt Date: 20100315
  Transmission Date: 20100710
  Serious: Yes (Other)
  Sender: FDA-Public Use
  Company Number: PHHY2010TR01878

PATIENT
  Age: 45 Year
  Sex: Female

DRUGS (2)
  1. FORADIL COMBI [Suspect]
     Indication: ASTHMA
     Dosage: 2X1, BID
     Dates: start: 20091223
  2. DICLOFENAC POTASSIUM [Concomitant]

REACTIONS (3)
  - DRUG INEFFECTIVE [None]
  - DYSPNOEA [None]
  - GASTROOESOPHAGEAL REFLUX DISEASE [None]
